FAERS Safety Report 4589935-7 (Version None)
Quarter: 2005Q1

REPORT INFORMATION
  Report Type: 
  Country: None (occurrence: None)
  Receive Date: 20050223
  Receipt Date: 20050105
  Transmission Date: 20050727
  Serious: Yes (Death, Hospitalization, Other)
  Sender: FDA-Public Use
  Company Number: JP-MERCK-0501USA00454

PATIENT
  Age: 68 Year
  Sex: Female
  Weight: 44 kg

DRUGS (12)
  1. PRIMAXIN [Suspect]
     Indication: BRONCHITIS
     Route: 030
     Dates: start: 20041229, end: 20041231
  2. PHENYTOIN SODIUM [Suspect]
     Indication: CONVULSION
     Route: 042
     Dates: start: 20050101
  3. PHENYTOIN SODIUM [Suspect]
     Route: 042
     Dates: start: 20050101
  4. PHENYTOIN SODIUM [Suspect]
     Route: 042
     Dates: start: 20050101
  5. SYMMETREL [Concomitant]
     Indication: TREMOR
     Route: 048
     Dates: start: 20041224, end: 20041231
  6. URSODIOL [Concomitant]
     Indication: GALLBLADDER OPERATION
     Route: 048
     Dates: start: 20041228, end: 20041231
  7. GASMOTIN [Concomitant]
     Indication: CONSTIPATION
     Route: 048
     Dates: start: 20041228, end: 20041231
  8. SELBEX [Concomitant]
     Indication: GASTRITIS
     Route: 048
     Dates: start: 20041228, end: 20041231
  9. CERCINE [Concomitant]
     Indication: CONVULSION
     Route: 042
     Dates: start: 20050101
  10. PHENOBAL [Concomitant]
     Indication: CONVULSION
     Route: 030
     Dates: start: 20050101, end: 20050101
  11. ROCEPHIN [Concomitant]
     Indication: PYREXIA
     Route: 042
     Dates: start: 20041201, end: 20041227
  12. MEROPENEM [Concomitant]
     Indication: PYREXIA
     Route: 042
     Dates: start: 20041227, end: 20041229

REACTIONS (13)
  - ALANINE AMINOTRANSFERASE INCREASED [None]
  - ASPARTATE AMINOTRANSFERASE INCREASED [None]
  - BLOOD CREATININE INCREASED [None]
  - BLOOD UREA INCREASED [None]
  - CONVULSION [None]
  - ELECTROENCEPHALOGRAM ABNORMAL [None]
  - MEDICATION ERROR [None]
  - MULTI-ORGAN FAILURE [None]
  - OVERDOSE [None]
  - PNEUMONIA ASPIRATION [None]
  - RESPIRATORY DEPRESSION [None]
  - SUBARACHNOID HAEMORRHAGE [None]
  - VOMITING [None]
